FAERS Safety Report 5843042-1 (Version None)
Quarter: 2008Q3

REPORT INFORMATION
  Report Type: 
  Country: None (occurrence: None)
  Receive Date: 20080813
  Receipt Date: 20080805
  Transmission Date: 20090109
  Serious: Yes (Death, Hospitalization, Other)
  Sender: FDA-Public Use
  Company Number: US-BAYER-200825874NA

PATIENT
  Age: 81 Year
  Sex: Female

DRUGS (7)
  1. CAMPATH [Suspect]
     Indication: T-CELL PROLYMPHOCYTIC LEUKAEMIA
     Dosage: TOTAL DAILY DOSE: 30 MG
     Route: 058
     Dates: start: 20080404, end: 20080616
  2. CAMPATH [Suspect]
     Dosage: TOTAL DAILY DOSE: 30 MG
     Route: 058
     Dates: start: 20080601, end: 20080601
  3. TYLENOL [Concomitant]
     Indication: PREMEDICATION
     Dosage: AS USED: 650 MG
     Route: 048
  4. BENADRYL [Concomitant]
     Indication: PREMEDICATION
     Dosage: AS USED: 25 MG
     Route: 048
  5. BACTRIM DS [Concomitant]
     Indication: INFECTION PROPHYLAXIS
     Dates: start: 20080404
  6. FAMVIR [Concomitant]
     Indication: INFECTION PROPHYLAXIS
     Dosage: TOTAL DAILY DOSE: 250 MG
  7. FLUCONAZOLE [Concomitant]
     Indication: INFECTION PROPHYLAXIS
     Dosage: TOTAL DAILY DOSE: 200 MG

REACTIONS (3)
  - DEATH [None]
  - PLATELET COUNT DECREASED [None]
  - WHITE BLOOD CELL COUNT DECREASED [None]
